FAERS Safety Report 25236062 (Version 2)
Quarter: 2025Q2

REPORT INFORMATION
  Report Type: Spontaneous
  Country: US (occurrence: US)
  Receive Date: 20250424
  Receipt Date: 20250526
  Transmission Date: 20250717
  Serious: No
  Sender: KYOWA
  Company Number: US-KYOWAKIRIN-2025KK007349

PATIENT

DRUGS (1)
  1. NOURIANZ [Suspect]
     Active Substance: ISTRADEFYLLINE
     Indication: Parkinson^s disease
     Dosage: 20 MG, QD
     Route: 048
     Dates: start: 20231006

REACTIONS (3)
  - Condition aggravated [Not Recovered/Not Resolved]
  - Fatigue [Unknown]
  - On and off phenomenon [Unknown]
